FAERS Safety Report 11930135 (Version 1)
Quarter: 2016Q1

REPORT INFORMATION
  Report Type: Spontaneous
  Country: US (occurrence: US)
  Receive Date: 20160120
  Receipt Date: 20160120
  Transmission Date: 20160526
  Serious: No
  Sender: FDA-Public Use
  Company Number: US-G+W LABORATORIES-1046642

PATIENT
  Sex: Female

DRUGS (1)
  1. CICLOPIROX. [Suspect]
     Active Substance: CICLOPIROX
     Indication: ONYCHOMYCOSIS
     Route: 065

REACTIONS (5)
  - Headache [Unknown]
  - Dysgeusia [Unknown]
  - Oral pain [Unknown]
  - Palpitations [Unknown]
  - Nausea [Unknown]
